FAERS Safety Report 5407647-4 (Version None)
Quarter: 2007Q3

REPORT INFORMATION
  Report Type: 
  Country: None (occurrence: None)
  Receive Date: 20070807
  Receipt Date: 20070726
  Transmission Date: 20080115
  Serious: Yes (Other)
  Sender: FDA-Public Use
  Company Number: GB-PFIZER INC-2007062420

PATIENT
  Age: 53 Year
  Sex: Female

DRUGS (4)
  1. AMLODIPINE [Suspect]
     Indication: MICROVASCULAR ANGINA
     Route: 048
     Dates: start: 20070531, end: 20070708
  2. ASPIRIN [Concomitant]
     Indication: MICROVASCULAR ANGINA
     Dosage: DAILY DOSE:75MG-FREQ:DAILY
     Route: 048
  3. ATENOLOL [Concomitant]
     Indication: MICROVASCULAR ANGINA
     Dosage: DAILY DOSE:75MG-FREQ:DAILY
     Route: 048
  4. BENDROFLUMETHIAZIDE [Concomitant]
     Indication: MICROVASCULAR ANGINA
     Dosage: DAILY DOSE:2.5MG-FREQ:DAILY
     Route: 048

REACTIONS (2)
  - JOINT STIFFNESS [None]
  - TREMOR [None]
